FAERS Safety Report 8344299-8 (Version None)
Quarter: 2012Q2

REPORT INFORMATION
  Report Type: 
  Country: None (occurrence: None)
  Receive Date: 20120508
  Receipt Date: 20081024
  Transmission Date: 20120825
  Serious: Yes (Other)
  Sender: FDA-Public Use
  Company Number: US-TEVA-US024934

PATIENT
  Sex: Male

DRUGS (4)
  1. RITUXAN [Concomitant]
     Indication: CHRONIC LYMPHOCYTIC LEUKAEMIA
     Dates: start: 20080601
  2. HYDROCHLOROTHIAZIDE [Concomitant]
     Indication: BLOOD PRESSURE
  3. LIPITOR [Concomitant]
     Indication: HYPERCHOLESTEROLAEMIA
  4. TREANDA [Suspect]
     Indication: CHRONIC LYMPHOCYTIC LEUKAEMIA
     Dosage: 90 MG/M2;
     Route: 042
     Dates: start: 20080601, end: 20080601

REACTIONS (2)
  - THROMBOCYTOPENIA [None]
  - ANAEMIA [None]
